FAERS Safety Report 18344022 (Version 1)
Quarter: 2020Q4

REPORT INFORMATION
  Report Type: Spontaneous
  Country: US (occurrence: US)
  Receive Date: 20201005
  Receipt Date: 20201005
  Transmission Date: 20210114
  Serious: No
  Sender: FDA-Public Use
  Company Number: None

PATIENT
  Age: 77 Year
  Sex: Male

DRUGS (19)
  1. LEVOTHYROXINE. [Concomitant]
     Active Substance: LEVOTHYROXINE
  2. THERAWORX RELIEF [Concomitant]
  3. B12 ACTIVE [Concomitant]
  4. FERROUS SULFATE. [Concomitant]
     Active Substance: FERROUS SULFATE
  5. FLUTICASONE PROPIONATE. [Concomitant]
     Active Substance: FLUTICASONE PROPIONATE
  6. LOVASTATIN. [Concomitant]
     Active Substance: LOVASTATIN
  7. NIFEDIPINE. [Concomitant]
     Active Substance: NIFEDIPINE
  8. OMEPRAZOLE. [Concomitant]
     Active Substance: OMEPRAZOLE
  9. SYMBICORT [Concomitant]
     Active Substance: BUDESONIDE\FORMOTEROL FUMARATE DIHYDRATE
  10. DICLOXACILLIN SODIUM. [Concomitant]
     Active Substance: DICLOXACILLIN SODIUM
  11. LISINOPRIL. [Concomitant]
     Active Substance: LISINOPRIL
  12. PENTOXIFYLLINE ER [Concomitant]
     Active Substance: PENTOXIFYLLINE
  13. PREDNISONE. [Concomitant]
     Active Substance: PREDNISONE
  14. FOLIC ACID. [Concomitant]
     Active Substance: FOLIC ACID
  15. MAGNESIUM [Concomitant]
     Active Substance: MAGNESIUM
  16. AMBRISENTAN [Suspect]
     Active Substance: AMBRISENTAN
     Indication: PULMONARY ARTERIAL HYPERTENSION
     Route: 048
  17. REVATIO [Concomitant]
     Active Substance: SILDENAFIL CITRATE
  18. PLAQUENIL [Concomitant]
     Active Substance: HYDROXYCHLOROQUINE SULFATE
  19. SENNA PLUS [Concomitant]
     Active Substance: DOCUSATE SODIUM\SENNOSIDES\SENNOSIDES A AND B

REACTIONS (1)
  - Muscle spasms [None]

NARRATIVE: CASE EVENT DATE: 20201005
